FAERS Safety Report 9095348 (Version 3)
Quarter: 2013Q2

REPORT INFORMATION
  Report Type: Spontaneous
  Country: JP (occurrence: JP)
  Receive Date: 20130220
  Receipt Date: 20130403
  Transmission Date: 20140414
  Serious: Yes (Hospitalization, Other)
  Sender: FDA-Public Use
  Company Number: PHHY2013JP010038

PATIENT
  Age: 12 Year
  Sex: Female

DRUGS (2)
  1. NEORAL [Suspect]
     Indication: NEPHROTIC SYNDROME
     Dosage: 125 MG
     Route: 048
     Dates: end: 20130128
  2. PREDONINE [Suspect]
     Dosage: 10 MG
     Route: 048

REACTIONS (3)
  - Germ cell cancer [Unknown]
  - Renal disorder [Recovered/Resolved]
  - Immunosuppressant drug level increased [Recovered/Resolved]
